FAERS Safety Report 15847593 (Version 15)
Quarter: 2024Q4

REPORT INFORMATION
  Report Type: Report from Study
  Country: DE (occurrence: DE)
  Receive Date: 20190121
  Receipt Date: 20241010
  Transmission Date: 20250114
  Serious: Yes (Other)
  Sender: ROCHE
  Company Number: DE-ROCHE-2245668

PATIENT
  Age: 44 Year
  Sex: Female

DRUGS (19)
  1. OCREVUS [Suspect]
     Active Substance: OCRELIZUMAB
     Indication: Relapsing-remitting multiple sclerosis
     Dosage: SUBSEQUENT DOSE 600 MG 1 IN 224 DAYS
     Route: 042
     Dates: start: 20180509, end: 20220913
  2. OCREVUS [Suspect]
     Active Substance: OCRELIZUMAB
     Route: 042
     Dates: start: 20180525
  3. OCREVUS [Suspect]
     Active Substance: OCRELIZUMAB
     Dosage: MAINTENANCE DOSE?15/AUG/2019
     Route: 042
     Dates: start: 20181220
  4. OCREVUS [Suspect]
     Active Substance: OCRELIZUMAB
     Route: 042
     Dates: start: 20190815
  5. OCREVUS [Suspect]
     Active Substance: OCRELIZUMAB
     Route: 042
     Dates: start: 20200727
  6. OCREVUS [Suspect]
     Active Substance: OCRELIZUMAB
     Route: 042
     Dates: start: 20201210
  7. CORTISONE [Suspect]
     Active Substance: CORTISONE
     Indication: Premedication
     Route: 042
     Dates: start: 20180509
  8. CORTISONE [Suspect]
     Active Substance: CORTISONE
     Route: 042
     Dates: start: 20180525
  9. CORTISONE [Suspect]
     Active Substance: CORTISONE
     Route: 042
     Dates: start: 20181220
  10. CORTISONE [Suspect]
     Active Substance: CORTISONE
     Dosage: 3X 2000 MG
     Route: 065
     Dates: start: 202007
  11. CORTISONE [Suspect]
     Active Substance: CORTISONE
     Dosage: 1X 1000 MG
     Route: 065
     Dates: start: 202007
  12. CORTISONE [Suspect]
     Active Substance: CORTISONE
     Dosage: FIVE TIMES
     Route: 065
     Dates: start: 202010
  13. CORTISONE [Suspect]
     Active Substance: CORTISONE
     Dosage: ONCE
     Route: 065
     Dates: start: 202010
  14. CORTISONE [Suspect]
     Active Substance: CORTISONE
     Dosage: ONCE
     Route: 065
     Dates: start: 202010
  15. CORTISONE [Suspect]
     Active Substance: CORTISONE
     Dosage: ONCE
     Route: 065
     Dates: start: 202010
  16. VESICARE [Concomitant]
     Active Substance: SOLIFENACIN SUCCINATE
  17. GABAPENTIN [Concomitant]
     Active Substance: GABAPENTIN
  18. VITAMIN D3 [Concomitant]
     Active Substance: CHOLECALCIFEROL
  19. LAMOTRIGINE [Concomitant]
     Active Substance: LAMOTRIGINE
     Dosage: (1-0-1)

REACTIONS (12)
  - Sleep disorder [Recovered/Resolved]
  - Fluid retention [Recovered/Resolved]
  - Malaise [Recovered/Resolved]
  - Oral herpes [Recovered/Resolved]
  - Paraesthesia [Recovered/Resolved]
  - Prescribed overdose [Unknown]
  - CD19 lymphocytes decreased [Not Recovered/Not Resolved]
  - Multiple sclerosis [Not Recovered/Not Resolved]
  - Inappropriate schedule of product administration [Unknown]
  - COVID-19 [Recovered/Resolved]
  - Blood immunoglobulin M decreased [Not Recovered/Not Resolved]
  - Blood immunoglobulin G decreased [Not Recovered/Not Resolved]

NARRATIVE: CASE EVENT DATE: 20180509
